FAERS Safety Report 4636973-1 (Version None)
Quarter: 2005Q2

REPORT INFORMATION
  Report Type: 
  Country: None (occurrence: None)
  Receive Date: 20050414
  Receipt Date: 20050405
  Transmission Date: 20051028
  Serious: Yes (Hospitalization)
  Sender: FDA-Public Use
  Company Number: 2005-01176

PATIENT
  Age: 44 Year
  Sex: Female
  Weight: 49.4 kg

DRUGS (5)
  1. HYDROCODONE BITARTRATE/ACETAMINOPHEN 10/500 (WATSON LABORATORIES) (ACE [Suspect]
     Indication: ANALGESIC EFFECT
     Dosage: (SEE IMAGE)
     Route: 048
     Dates: start: 20040501, end: 20050331
  2. HYDROCODONE BITARTRATE/ACETAMINOPHEN 10/500 (WATSON LABORATORIES) (ACE [Suspect]
     Indication: ANALGESIC EFFECT
     Dosage: (SEE IMAGE)
     Route: 048
     Dates: start: 20050401
  3. ALPRAZOLAM [Suspect]
     Indication: MUSCLE SPASMS
     Dosage: 1 TABLET, TID; ORAL
     Route: 048
     Dates: start: 20040501
  4. METHOCARBAMOL (WATSON LABORATORIES) [Concomitant]
  5. ZYRTEC [Concomitant]

REACTIONS (8)
  - BLOOD PRESSURE INCREASED [None]
  - CHEST PAIN [None]
  - DRUG WITHDRAWAL SYNDROME [None]
  - ERYTHEMA OF EYELID [None]
  - EYELID OEDEMA [None]
  - OCULAR HYPERAEMIA [None]
  - PHARMACEUTICAL PRODUCT COMPLAINT [None]
  - TREATMENT NONCOMPLIANCE [None]
